FAERS Safety Report 8002627-7 (Version None)
Quarter: 2011Q4

REPORT INFORMATION
  Report Type: 
  Country: None (occurrence: None)
  Receive Date: 20111222
  Receipt Date: 20111124
  Transmission Date: 20120403
  Serious: Yes (Hospitalization)
  Sender: FDA-Public Use
  Company Number: JP-GLAXOSMITHKLINE-B0765418A

PATIENT
  Sex: Female

DRUGS (6)
  1. ZONISAMIDE [Suspect]
     Indication: PRODUCT USED FOR UNKNOWN INDICATION
     Dosage: 100MG PER DAY
     Route: 048
     Dates: start: 20111004, end: 20111110
  2. DEPAS [Suspect]
     Indication: AUTONOMIC NERVOUS SYSTEM IMBALANCE
     Dosage: .5MG PER DAY
     Route: 048
     Dates: start: 20110601, end: 20111121
  3. ASPIRIN [Suspect]
     Indication: PRODUCT USED FOR UNKNOWN INDICATION
     Dosage: 100MG PER DAY
     Route: 048
     Dates: start: 20110830, end: 20111121
  4. HARNAL D [Concomitant]
     Indication: NEUROGENIC BLADDER
     Dosage: .2MG PER DAY
     Route: 048
     Dates: start: 20110920, end: 20111110
  5. PAXIL [Suspect]
     Indication: DEPRESSION
     Route: 048
     Dates: start: 20110726, end: 20111121
  6. UNKNOWN DRUG [Concomitant]
     Route: 048
     Dates: start: 20111029

REACTIONS (14)
  - LIP EROSION [None]
  - ALANINE AMINOTRANSFERASE INCREASED [None]
  - STEVENS-JOHNSON SYNDROME [None]
  - GAMMA-GLUTAMYLTRANSFERASE INCREASED [None]
  - LEUCINE AMINOPEPTIDASE INCREASED [None]
  - ERYTHEMA [None]
  - OROPHARYNGEAL PAIN [None]
  - LIP PAIN [None]
  - BLOOD LACTATE DEHYDROGENASE INCREASED [None]
  - C-REACTIVE PROTEIN INCREASED [None]
  - LIP ULCERATION [None]
  - PYREXIA [None]
  - DRUG ERUPTION [None]
  - PRURITUS GENERALISED [None]
